FAERS Safety Report 20377906 (Version 3)
Quarter: 2022Q4

REPORT INFORMATION
  Report Type: Spontaneous
  Country: AT (occurrence: AT)
  Receive Date: 20220126
  Receipt Date: 20221122
  Transmission Date: 20230113
  Serious: Yes (Life-Threatening, Hospitalization, Other)
  Sender: FDA-Public Use
  Company Number: None

PATIENT
  Sex: Female

DRUGS (2)
  1. METHOTREXATE SODIUM [Suspect]
     Active Substance: METHOTREXATE SODIUM
     Indication: Rheumatoid arthritis
     Dosage: UNK UNK, QD (STATT 1X W?CHENTLICHER EINNAHME BEI RHEUMATOIDER ARTHRITIS T?GLICHE EINNAHME VOM 10.12.
     Route: 065
     Dates: start: 20211210, end: 20220104
  2. METHOTREXATE SODIUM [Suspect]
     Active Substance: METHOTREXATE SODIUM
     Dosage: UNK (DAMALIGE ANFANGSDOSIS IST LEIDER UNBEKANNT)
     Route: 065
     Dates: start: 2005

REACTIONS (8)
  - Toxicity to various agents [Unknown]
  - Inappropriate schedule of product administration [Unknown]
  - Poisoning [Unknown]
  - Oral disorder [Not Recovered/Not Resolved]
  - Pancytopenia [Not Recovered/Not Resolved]
  - Asthenia [Not Recovered/Not Resolved]
  - Anaemia [Not Recovered/Not Resolved]
  - Medication error [Unknown]

NARRATIVE: CASE EVENT DATE: 20220104
